FAERS Safety Report 23539976 (Version 1)
Quarter: 2024Q1

REPORT INFORMATION
  Report Type: Spontaneous
  Country: JP (occurrence: JP)
  Receive Date: 20240219
  Receipt Date: 20240219
  Transmission Date: 20240410
  Serious: Yes (Hospitalization, Other)
  Sender: FDA-Public Use
  Company Number: JP-BAYER-2024A017367

PATIENT
  Age: 78 Year
  Sex: Female

DRUGS (6)
  1. KERENDIA [Suspect]
     Active Substance: FINERENONE
     Indication: Chronic kidney disease
     Dosage: 10MG
     Route: 048
  2. KERENDIA [Suspect]
     Active Substance: FINERENONE
     Indication: Type 2 diabetes mellitus
  3. METFORMIN HYDROCHLORIDE [Concomitant]
     Active Substance: METFORMIN HYDROCHLORIDE
     Dosage: 250MG X 6 T
  4. ROSUVASTATIN [Concomitant]
     Active Substance: ROSUVASTATIN
     Dosage: 2.5MG X 1 T
  5. TELMISARTAN [Concomitant]
     Active Substance: TELMISARTAN
     Dosage: 20MG X 1 T
  6. XULTOPHY 100/3.6 [Concomitant]
     Active Substance: INSULIN DEGLUDEC\LIRAGLUTIDE
     Dosage: DAILY DOSE 14 U

REACTIONS (2)
  - Subarachnoid haemorrhage [Unknown]
  - Gastric cancer [None]

NARRATIVE: CASE EVENT DATE: 20231201
